FAERS Safety Report 6532549-X (Version None)
Quarter: 2010Q1

REPORT INFORMATION
  Report Type: 
  Country: None (occurrence: None)
  Receive Date: 20100111
  Receipt Date: 20091231
  Transmission Date: 20100710
  Serious: Yes (Hospitalization)
  Sender: FDA-Public Use
  Company Number: CA-ASTRAZENECA-2010SE00024

PATIENT
  Age: 65 Year
  Sex: Female
  Weight: 71.2 kg

DRUGS (14)
  1. FULVESTRANT [Suspect]
     Indication: BREAST CANCER
     Dosage: 250 MG MONTHLY CYCLIC
     Route: 030
     Dates: start: 20090821, end: 20091213
  2. EXEMESTANE [Suspect]
     Indication: BREAST CANCER
     Route: 048
     Dates: start: 20090505, end: 20090821
  3. UNKNOWN [Suspect]
     Indication: BREAST CANCER
     Dosage: 1486 MG
     Route: 042
     Dates: start: 20090505, end: 20091113
  4. METOPROLOL [Concomitant]
     Indication: HYPERTENSION
     Dates: start: 20090902
  5. ZANTAC [Concomitant]
     Indication: DYSPEPSIA
     Dates: start: 20090821, end: 20091211
  6. REGLAN [Concomitant]
     Indication: ABDOMINAL DISCOMFORT
     Dates: start: 20090820
  7. ROBITUSSIN AC [Concomitant]
     Indication: COUGH
     Dates: start: 20090730
  8. MYLANTA [Concomitant]
     Indication: DYSPEPSIA
     Dates: start: 20090730
  9. METFORMIN [Concomitant]
     Indication: HYPERGLYCAEMIA
     Dates: start: 20090710
  10. FUROSEMIDE [Concomitant]
     Indication: HYPERTENSION
     Dates: start: 20081001
  11. COVERSYL PLUS [Concomitant]
     Indication: HYPERTENSION
     Dates: start: 20070501
  12. ALLOPURINOL [Concomitant]
     Indication: GOUT
     Dates: start: 20020301
  13. APO-FENOFIBRATE [Concomitant]
     Indication: BLOOD CHOLESTEROL
     Dates: start: 20021001
  14. CARBOCAL D 400 [Concomitant]
     Indication: OSTEOPOROSIS
     Dates: start: 20040101

REACTIONS (1)
  - PULMONARY EMBOLISM [None]
